FAERS Safety Report 24358358 (Version 1)
Quarter: 2024Q3

REPORT INFORMATION
  Report Type: Spontaneous
  Country: JP (occurrence: JP)
  Receive Date: 20240924
  Receipt Date: 20240924
  Transmission Date: 20241016
  Serious: Yes (Hospitalization, Other)
  Sender: BOEHRINGER INGELHEIM
  Company Number: JP-NBI-2024-BI-053058

PATIENT
  Age: 66 Year
  Sex: Male

DRUGS (5)
  1. OFEV [Suspect]
     Active Substance: NINTEDANIB
     Indication: Idiopathic pulmonary fibrosis
     Dosage: DAILY DOSE: 300 MILLIGRAM(S)
     Route: 048
     Dates: start: 20230712, end: 20230814
  2. OFEV [Suspect]
     Active Substance: NINTEDANIB
     Dosage: DAILY DOSE: 200 MILLIGRAM(S)
     Route: 048
     Dates: start: 20230815, end: 20230830
  3. OFEV [Suspect]
     Active Substance: NINTEDANIB
     Dosage: EVERY OTHER DAY
     Route: 048
     Dates: start: 20231118, end: 20231211
  4. OFEV [Suspect]
     Active Substance: NINTEDANIB
     Dosage: DAILY DOSE: 200 MILLIGRAM(S)
     Route: 048
     Dates: start: 20240530, end: 20240628
  5. OFEV [Suspect]
     Active Substance: NINTEDANIB
     Dosage: DAILY DOSE: 100 MILLIGRAM(S)
     Route: 048
     Dates: start: 20240629

REACTIONS (4)
  - Hepatic function abnormal [Recovered/Resolved]
  - Septic shock [Recovered/Resolved]
  - Idiopathic pulmonary fibrosis [Recovered/Resolved]
  - Diarrhoea [Unknown]

NARRATIVE: CASE EVENT DATE: 20230701
